APPROVED DRUG PRODUCT: FOSINOPRIL SODIUM
Active Ingredient: FOSINOPRIL SODIUM
Strength: 40MG
Dosage Form/Route: TABLET;ORAL
Application: A091163 | Product #003 | TE Code: AB
Applicant: AUROBINDO PHARMA LIMITED
Approved: Mar 30, 2011 | RLD: No | RS: No | Type: RX